FAERS Safety Report 22131314 (Version 1)
Quarter: 2023Q1

REPORT INFORMATION
  Report Type: Spontaneous
  Country: US (occurrence: US)
  Receive Date: 20230323
  Receipt Date: 20230323
  Transmission Date: 20230417
  Serious: No
  Sender: FDA-Public Use
  Company Number: US-ALLERGAN-2304368US

PATIENT
  Age: 81 Year
  Sex: Female
  Weight: 97.068 kg

DRUGS (2)
  1. COMBIGAN [Suspect]
     Active Substance: BRIMONIDINE TARTRATE\TIMOLOL MALEATE
     Indication: Glaucoma
     Dosage: 2 GTT, BID
     Route: 047
     Dates: end: 20230215
  2. DORZOLAMIDE [Concomitant]
     Active Substance: DORZOLAMIDE
     Indication: Glaucoma
     Route: 047

REACTIONS (2)
  - Optic nerve disorder [Not Recovered/Not Resolved]
  - Product container issue [Unknown]

NARRATIVE: CASE EVENT DATE: 20230208
